FAERS Safety Report 9196370 (Version 1)
Quarter: 2013Q1

REPORT INFORMATION
  Report Type: Spontaneous
  Country: FR (occurrence: FR)
  Receive Date: 20130328
  Receipt Date: 20130328
  Transmission Date: 20140127
  Serious: Yes (Disabling, Other)
  Sender: FDA-Public Use
  Company Number: FR-PFIZER INC-2013092552

PATIENT
  Age: 57 Year
  Sex: Female

DRUGS (4)
  1. REVATIO [Suspect]
     Indication: PULMONARY ARTERIAL HYPERTENSION
     Dosage: 20 MG, 3X/DAY
     Route: 048
     Dates: start: 200609, end: 20070525
  2. TRACLEER [Concomitant]
     Dosage: UNK
  3. COUMADINE [Concomitant]
     Dosage: UNK
  4. ALDALIX [Concomitant]
     Dosage: UNK

REACTIONS (2)
  - Sudden visual loss [Unknown]
  - Optic neuritis [Not Recovered/Not Resolved]
